FAERS Safety Report 26148995 (Version 1)
Quarter: 2025Q4

REPORT INFORMATION
  Report Type: Spontaneous
  Country: CN (occurrence: CN)
  Receive Date: 20251212
  Receipt Date: 20251212
  Transmission Date: 20260118
  Serious: Yes (Other)
  Sender: SANDOZ
  Company Number: CN-SANDOZ-SDZ2025CN093099

PATIENT

DRUGS (1)
  1. ROSUVASTATIN CALCIUM [Suspect]
     Active Substance: ROSUVASTATIN CALCIUM
     Indication: Product used for unknown indication
     Dosage: 100 MG, QD (ONCE PER EVENING)
     Route: 065

REACTIONS (4)
  - Renal impairment [Unknown]
  - Abdominal discomfort [Unknown]
  - Liver function test abnormal [Unknown]
  - Rash [Unknown]
